FAERS Safety Report 6306545-1 (Version None)
Quarter: 2009Q3

REPORT INFORMATION
  Report Type: 
  Country: None (occurrence: None)
  Receive Date: 20090812
  Receipt Date: 20090806
  Transmission Date: 20100115
  Serious: Yes (Life-Threatening, Hospitalization, Other)
  Sender: FDA-Public Use
  Company Number: US-MERCK-0903USA00788

PATIENT
  Age: 75 Year
  Sex: Female
  Weight: 83 kg

DRUGS (20)
  1. MEVACOR [Suspect]
     Indication: HYPERLIPIDAEMIA
     Route: 048
  2. DILTIAZEM HYDROCHLORIDE [Concomitant]
     Route: 065
  3. GLIMEPIRIDE [Concomitant]
     Route: 065
  4. LEVOTHYROXINE SODIUM [Concomitant]
     Route: 065
  5. HYDROCHLOROTHIAZIDE [Concomitant]
     Route: 048
  6. METOCLOPRAMIDE [Concomitant]
     Route: 065
  7. ALENDRONATE SODIUM [Concomitant]
     Route: 048
  8. ESOMEPRAZOLE [Concomitant]
     Route: 065
  9. TIOTROPIUM BROMIDE [Concomitant]
     Route: 065
  10. CYANOCOBALAMIN [Concomitant]
     Route: 065
  11. HYDROMORPHONE [Concomitant]
     Route: 065
  12. METHOCARBAMOL [Concomitant]
     Route: 065
  13. DI-GESIC [Concomitant]
     Route: 065
  14. JANUVIA [Suspect]
     Indication: DIABETES MELLITUS
     Route: 048
  15. PYRIDOXINE [Concomitant]
     Route: 065
  16. PROPOXYPHENE [Concomitant]
     Route: 065
  17. ROSIGLITAZONE MALEATE [Concomitant]
     Route: 065
  18. PIOGLITAZONE HYDROCHLORIDE [Concomitant]
     Route: 065
  19. FOLIC ACID [Concomitant]
     Route: 065
  20. PENICILLIN (UNSPECIFIED) [Concomitant]
     Route: 065

REACTIONS (9)
  - ALANINE AMINOTRANSFERASE INCREASED [None]
  - ANXIETY [None]
  - ASPARTATE AMINOTRANSFERASE INCREASED [None]
  - BACK PAIN [None]
  - DRUG INTERACTION [None]
  - FALL [None]
  - HYPERTENSION [None]
  - RHABDOMYOLYSIS [None]
  - WEIGHT DECREASED [None]
